FAERS Safety Report 9644260 (Version 3)
Quarter: 2013Q4

REPORT INFORMATION
  Report Type: Spontaneous
  Country: US (occurrence: US)
  Receive Date: 20131025
  Receipt Date: 20131029
  Transmission Date: 20140711
  Serious: Yes (Other)
  Sender: FDA-Public Use
  Company Number: US-PFIZER INC-2013251220

PATIENT
  Sex: Male

DRUGS (1)
  1. DILANTIN [Suspect]
     Indication: CONVULSION
     Dosage: 100 MG, (180 PILLS A MONTH)

REACTIONS (2)
  - Cognitive disorder [Unknown]
  - Confusional state [Unknown]
